FAERS Safety Report 9844780 (Version 2)
Quarter: 2014Q1

REPORT INFORMATION
  Report Type: Report from Study
  Country: US (occurrence: US)
  Receive Date: 20140127
  Receipt Date: 20140203
  Transmission Date: 20141002
  Serious: Yes (Hospitalization)
  Sender: FDA-Public Use
  Company Number: US-JNJFOC-20140114027

PATIENT
  Age: 18 Year
  Sex: Male
  Weight: 94.9 kg

DRUGS (27)
  1. REMICADE [Suspect]
     Indication: INFLAMMATORY BOWEL DISEASE
     Route: 042
     Dates: start: 20121116, end: 20121231
  2. HUMIRA [Concomitant]
     Indication: INFLAMMATORY BOWEL DISEASE
     Route: 065
     Dates: start: 20130812
  3. HYDROCORTISONE [Concomitant]
     Indication: INFLAMMATORY BOWEL DISEASE
     Route: 065
  4. PREDNISONE [Concomitant]
     Indication: INFLAMMATORY BOWEL DISEASE
     Route: 065
  5. METHOTREXATE [Concomitant]
     Indication: INFLAMMATORY BOWEL DISEASE
     Route: 065
  6. PROBIOTICS [Concomitant]
     Indication: INFLAMMATORY BOWEL DISEASE
     Route: 065
  7. CALCIUM CARBONATE [Concomitant]
     Route: 065
  8. FERROUS SULPHATE [Concomitant]
     Route: 065
  9. FOLIC ACID [Concomitant]
     Route: 065
  10. MULTIVITAMINS [Concomitant]
     Route: 065
  11. HYOSCYAMINE [Concomitant]
     Route: 065
  12. ZOFRAN [Concomitant]
     Route: 065
  13. AMLODIPINE [Concomitant]
     Route: 065
  14. DIPHENHYDRAMINE [Concomitant]
     Route: 065
  15. ESOMEPRAZOLE [Concomitant]
     Route: 065
  16. METOPROLOL [Concomitant]
     Route: 065
  17. TRAMADOL [Concomitant]
     Route: 065
  18. HYDROMORPHONE [Concomitant]
     Route: 065
  19. MORPHINE [Concomitant]
     Route: 065
  20. VANCOMYCIN [Concomitant]
     Route: 065
  21. FLEXERIL [Concomitant]
     Route: 065
  22. GABAPENTIN [Concomitant]
     Route: 065
  23. LISINOPRIL [Concomitant]
     Route: 065
  24. SIMETHICONE [Concomitant]
     Route: 065
  25. OXYCODONE [Concomitant]
     Route: 065
  26. METRONIDAZOLE [Concomitant]
     Route: 065
  27. TYLENOL [Concomitant]
     Route: 065

REACTIONS (1)
  - Postoperative ileus [Recovered/Resolved]
